FAERS Safety Report 23504213 (Version 1)
Quarter: 2024Q1

REPORT INFORMATION
  Report Type: Report from Study
  Country: US (occurrence: US)
  Receive Date: 20240209
  Receipt Date: 20240209
  Transmission Date: 20240410
  Serious: Yes (Hospitalization)
  Sender: FDA-Public Use
  Company Number: US-ABBVIE-5625103

PATIENT
  Age: 70 Year
  Sex: Female

DRUGS (1)
  1. HUMIRA [Suspect]
     Active Substance: ADALIMUMAB
     Indication: Psoriasis
     Dosage: STRENGTH 40 MG
     Route: 058
     Dates: start: 20230126

REACTIONS (4)
  - Haemorrhoids [Unknown]
  - Ulcer haemorrhage [Unknown]
  - Postoperative wound infection [Unknown]
  - Illness [Unknown]

NARRATIVE: CASE EVENT DATE: 20230701
